FAERS Safety Report 14634491 (Version 1)
Quarter: 2018Q1

REPORT INFORMATION
  Report Type: Spontaneous
  Country: IT (occurrence: IT)
  Receive Date: 20180314
  Receipt Date: 20180314
  Transmission Date: 20180509
  Serious: Yes (Death, Hospitalization, Other)
  Sender: FDA-Public Use
  Company Number: IT-SUN PHARMACEUTICAL INDUSTRIES LTD-2018RR-166118

PATIENT
  Age: 71 Year
  Sex: Male

DRUGS (14)
  1. IMIPENEM AND CILASTATIN [Suspect]
     Active Substance: CILASTATIN SODIUM\IMIPENEM
     Indication: PANCREATITIS NECROTISING
  2. CIPROFLOXACIN. [Suspect]
     Active Substance: CIPROFLOXACIN
     Indication: PANCREATITIS NECROTISING
  3. IMIPENEM AND CILASTATIN [Suspect]
     Active Substance: CILASTATIN SODIUM\IMIPENEM
     Indication: PANCREATITIS HAEMORRHAGIC
     Route: 065
  4. CIPROFLOXACIN. [Suspect]
     Active Substance: CIPROFLOXACIN
     Indication: PANCREATITIS HAEMORRHAGIC
     Route: 065
  5. VANCOMYCIN [Suspect]
     Active Substance: VANCOMYCIN
     Indication: PANCREATITIS NECROTISING
  6. TRIMETHOPRIM-SULFAMETHOXAZOLE [Suspect]
     Active Substance: SULFAMETHOXAZOLE\TRIMETHOPRIM
     Indication: PANCREATITIS HAEMORRHAGIC
     Route: 065
  7. TRIMETHOPRIM-SULFAMETHOXAZOLE [Suspect]
     Active Substance: SULFAMETHOXAZOLE\TRIMETHOPRIM
     Indication: PANCREATITIS NECROTISING
  8. FLUCONAZOLE. [Suspect]
     Active Substance: FLUCONAZOLE
     Indication: PANCREATITIS NECROTISING
  9. TIGECYCLINE. [Suspect]
     Active Substance: TIGECYCLINE
     Indication: PANCREATITIS NECROTISING
  10. MEROPENEM. [Suspect]
     Active Substance: MEROPENEM
     Indication: PANCREATITIS NECROTISING
  11. FLUCONAZOLE. [Suspect]
     Active Substance: FLUCONAZOLE
     Indication: PANCREATITIS HAEMORRHAGIC
     Route: 065
  12. TIGECYCLINE. [Suspect]
     Active Substance: TIGECYCLINE
     Indication: PANCREATITIS HAEMORRHAGIC
     Route: 065
  13. MEROPENEM. [Suspect]
     Active Substance: MEROPENEM
     Indication: PANCREATITIS HAEMORRHAGIC
     Route: 065
  14. VANCOMYCIN [Suspect]
     Active Substance: VANCOMYCIN
     Indication: PANCREATITIS HAEMORRHAGIC
     Route: 065

REACTIONS (3)
  - Multiple organ dysfunction syndrome [Fatal]
  - Multiple-drug resistance [Fatal]
  - Drug ineffective [Fatal]
